FAERS Safety Report 7215007-9 (Version None)
Quarter: 2011Q1

REPORT INFORMATION
  Report Type: 
  Country: None (occurrence: None)
  Receive Date: 20110107
  Receipt Date: 20100706
  Transmission Date: 20110831
  Serious: No
  Sender: FDA-Public Use
  Company Number: A0868686A

PATIENT
  Age: 85 Year
  Sex: Female

DRUGS (2)
  1. LOVAZA [Suspect]
     Dosage: 4CAP PER DAY
     Route: 048
     Dates: start: 20100609
  2. BLOOD PRESSURE MEDICATION [Concomitant]

REACTIONS (6)
  - FATIGUE [None]
  - ALOPECIA [None]
  - ONYCHOCLASIS [None]
  - NAIL DISORDER [None]
  - ASTHENIA [None]
  - PAIN IN EXTREMITY [None]
